FAERS Safety Report 4818878-6 (Version None)
Quarter: 2005Q4

REPORT INFORMATION
  Report Type: 
  Country: None (occurrence: None)
  Receive Date: 20051101
  Receipt Date: 20051017
  Transmission Date: 20060501
  Serious: Yes (Hospitalization)
  Sender: FDA-Public Use
  Company Number: 003#3#2005-00205

PATIENT
  Age: 81 Year
  Sex: Male

DRUGS (5)
  1. ISOSORBIDE MONONITRATE [Suspect]
     Indication: MYOCARDIAL ISCHAEMIA
     Dosage: 60 MG
     Route: 048
  2. FUROSEMIDE [Suspect]
     Indication: CARDIAC FAILURE CONGESTIVE
     Dosage: 160 (80 MG 2 IN 1 DAY (S))
     Route: 048
  3. LOSARTAN POTASSIUM [Suspect]
     Indication: MYOCARDIAL ISCHAEMIA
     Dosage: 50 MG (50 MG 1 IN 1 DAY (S))
     Route: 048
  4. ALLOPURINOL [Concomitant]
  5. SPIRONOLACTONE [Concomitant]

REACTIONS (2)
  - FALL [None]
  - HYPOTENSION [None]
